FAERS Safety Report 6460449-2 (Version None)
Quarter: 2009Q4

REPORT INFORMATION
  Report Type: 
  Country: None (occurrence: None)
  Receive Date: 20091130
  Receipt Date: 20091123
  Transmission Date: 20100525
  Serious: Yes (Death, Hospitalization)
  Sender: FDA-Public Use
  Company Number: BE-ROCHE-671039

PATIENT
  Sex: Female
  Weight: 68 kg

DRUGS (5)
  1. CAPECITABINE [Suspect]
     Indication: BREAST CANCER
     Route: 048
     Dates: start: 20090609, end: 20090916
  2. E7389 [Suspect]
     Route: 065
  3. EPREX [Concomitant]
     Route: 058
     Dates: start: 20090729
  4. ZANTAC [Concomitant]
     Route: 048
     Dates: start: 20090620
  5. NULYTELY [Concomitant]
     Route: 048
     Dates: start: 20090903

REACTIONS (2)
  - GENERAL PHYSICAL HEALTH DETERIORATION [None]
  - LIVER FUNCTION TEST ABNORMAL [None]
